FAERS Safety Report 5258685-6 (Version None)
Quarter: 2007Q1

REPORT INFORMATION
  Report Type: 
  Country: None (occurrence: None)
  Receive Date: 20070308
  Receipt Date: 20070301
  Transmission Date: 20070707
  Serious: Yes (Disabling)
  Sender: FDA-Public Use
  Company Number: 2007AP01237

PATIENT
  Age: 26164 Day
  Sex: Female
  Weight: 62 kg

DRUGS (8)
  1. ARIMIDEX [Suspect]
     Indication: BREAST CANCER
     Route: 048
     Dates: start: 20040827, end: 20070201
  2. LIPITOR [Suspect]
     Indication: HYPERCHOLESTEROLAEMIA
     Route: 048
     Dates: start: 20050128
  3. RULID [Concomitant]
     Indication: NASOPHARYNGITIS
     Route: 048
     Dates: start: 20040827, end: 20040831
  4. TRANSAMIN [Concomitant]
     Indication: NASOPHARYNGITIS
     Route: 048
     Dates: start: 20040827, end: 20040831
  5. RADIOTHERAPY [Concomitant]
     Dosage: 50 GY
     Dates: start: 20040830, end: 20041005
  6. FARMORUBICIN [Concomitant]
     Dosage: FOUR COURSES
     Dates: start: 20040206, end: 20040827
  7. ENDOXAN [Concomitant]
     Dosage: FOUR COURSES
     Dates: start: 20040206, end: 20040827
  8. PACLITAXEL [Concomitant]
     Dosage: FOUR COURSES
     Dates: start: 20040206, end: 20040827

REACTIONS (1)
  - OSTEONECROSIS [None]
